FAERS Safety Report 5020496-4 (Version None)
Quarter: 2006Q2

REPORT INFORMATION
  Report Type: 
  Country: None (occurrence: None)
  Receive Date: 20060601
  Receipt Date: 20060519
  Transmission Date: 20061013
  Serious: Yes (Other)
  Sender: FDA-Public Use
  Company Number: 2006063305

PATIENT
  Age: 64 Year
  Sex: Female

DRUGS (2)
  1. XALATAN [Suspect]
     Indication: ILL-DEFINED DISORDER
     Dates: start: 20060101, end: 20060509
  2. XALACOM (LATANOPROST, TIMOLOL) [Suspect]
     Indication: ILL-DEFINED DISORDER
     Dates: start: 20060101, end: 20060509

REACTIONS (2)
  - PRODUCTIVE COUGH [None]
  - WHEEZING [None]
